FAERS Safety Report 10384101 (Version 1)
Quarter: 2014Q3

REPORT INFORMATION
  Report Type: Spontaneous
  Country: US (occurrence: None)
  Receive Date: 20140813
  Receipt Date: 20140813
  Transmission Date: 20150326
  Serious: No
  Sender: FDA-Public Use
  Company Number: None

PATIENT
  Age: 94 Year
  Sex: Female

DRUGS (1)
  1. RANITIDINE [Suspect]
     Active Substance: RANITIDINE\RANITIDINE HYDROCHLORIDE
     Dosage: 1 TABLET QD ORAL
     Route: 048
     Dates: start: 20140624, end: 20140702

REACTIONS (2)
  - Reaction to colouring [None]
  - Throat tightness [None]

NARRATIVE: CASE EVENT DATE: 20140702
